FAERS Safety Report 10098609 (Version 1)
Quarter: 2014Q2

REPORT INFORMATION
  Report Type: Spontaneous
  Country: CN (occurrence: CN)
  Receive Date: 20140423
  Receipt Date: 20140423
  Transmission Date: 20141212
  Serious: Yes (Hospitalization)
  Sender: FDA-Public Use
  Company Number: CN-PFIZER INC-2014108756

PATIENT
  Age: 61 Year
  Sex: Female
  Weight: 74 kg

DRUGS (2)
  1. DIFLUCAN [Suspect]
     Indication: INFECTION
     Dosage: 0.4 G, 1X/DAY
     Route: 048
     Dates: start: 20131207
  2. DIFLUCAN [Suspect]
     Indication: FUNGAL INFECTION
     Dosage: 0.2 G, 1X/DAY
     Route: 041
     Dates: start: 20131209, end: 20131211

REACTIONS (1)
  - Tic [Recovered/Resolved]
